FAERS Safety Report 23201318 (Version 2)
Quarter: 2023Q4

REPORT INFORMATION
  Report Type: Spontaneous
  Country: US (occurrence: US)
  Receive Date: 20231118
  Receipt Date: 20231122
  Transmission Date: 20240109
  Serious: Yes (Life-Threatening, Hospitalization, Other)
  Sender: FDA-Public Use
  Company Number: US-GLENMARK PHARMACEUTICALS-2023GMK086471

PATIENT

DRUGS (1)
  1. SULFAMETHOXAZOLE\TRIMETHOPRIM [Suspect]
     Active Substance: SULFAMETHOXAZOLE\TRIMETHOPRIM
     Indication: Skin infection
     Dosage: UNK, BID (TWICE A DAY)
     Route: 065

REACTIONS (15)
  - Confusional state [Recovering/Resolving]
  - Mental status changes [Recovering/Resolving]
  - Sinus tachycardia [Unknown]
  - Abdominal tenderness [Unknown]
  - Type IV hypersensitivity reaction [Recovering/Resolving]
  - Petechiae [Unknown]
  - Multiple organ dysfunction syndrome [Recovering/Resolving]
  - Rash maculo-papular [Recovered/Resolved]
  - Acute kidney injury [Recovering/Resolving]
  - Thrombocytopenia [Recovering/Resolving]
  - Hyponatraemia [Recovering/Resolving]
  - Pyrexia [Unknown]
  - Hypertransaminasaemia [Recovering/Resolving]
  - Blood creatinine increased [Recovering/Resolving]
  - Drug reaction with eosinophilia and systemic symptoms [Recovering/Resolving]
